FAERS Safety Report 4889731-7 (Version None)
Quarter: 2006Q1

REPORT INFORMATION
  Report Type: 
  Country: None (occurrence: None)
  Receive Date: 20060124
  Receipt Date: 20050412
  Transmission Date: 20060701
  Serious: Yes (Hospitalization, Other)
  Sender: FDA-Public Use
  Company Number: US-MERCK-0504USA02215

PATIENT
  Age: 45 Year
  Sex: Female
  Weight: 52 kg

DRUGS (1)
  1. VIOXX [Suspect]
     Indication: PAIN
     Route: 048
     Dates: start: 19990819, end: 20021108

REACTIONS (6)
  - BACK DISORDER [None]
  - HEADACHE [None]
  - ISCHAEMIC STROKE [None]
  - JAW DISORDER [None]
  - NECK PAIN [None]
  - PYREXIA [None]
